FAERS Safety Report 9542501 (Version 1)
Quarter: 2013Q3

REPORT INFORMATION
  Report Type: Spontaneous
  Country: AU (occurrence: AU)
  Receive Date: 20130923
  Receipt Date: 20130923
  Transmission Date: 20140515
  Serious: Yes (Other)
  Sender: FDA-Public Use
  Company Number: PHHY2013AU105436

PATIENT
  Sex: Female

DRUGS (1)
  1. FAMCICLOVIR [Suspect]
     Dosage: UNK UKN, UNK

REACTIONS (7)
  - Hypersensitivity [Unknown]
  - Palpitations [Unknown]
  - Dyspnoea [Unknown]
  - Tremor [Unknown]
  - Anxiety [Unknown]
  - Feeling abnormal [Unknown]
  - Dizziness [Unknown]
